FAERS Safety Report 17320896 (Version 1)
Quarter: 2020Q1

REPORT INFORMATION
  Report Type: Spontaneous
  Country: US (occurrence: US)
  Receive Date: 20200126
  Receipt Date: 20200126
  Transmission Date: 20200409
  Serious: No
  Sender: FDA-Public Use
  Company Number: US-ACORDA-ACO_158743_2019

PATIENT
  Sex: Female
  Weight: 99.77 kg

DRUGS (5)
  1. AMPYRA [Suspect]
     Active Substance: DALFAMPRIDINE
     Indication: GAIT DISTURBANCE
  2. DALFAMPRIDINE. [Suspect]
     Active Substance: DALFAMPRIDINE
     Indication: MULTIPLE SCLEROSIS
  3. AMPYRA [Suspect]
     Active Substance: DALFAMPRIDINE
     Indication: MULTIPLE SCLEROSIS
     Dosage: 10 MILLIGRAM, BID
     Route: 065
     Dates: end: 201810
  4. DALFAMPRIDINE. [Suspect]
     Active Substance: DALFAMPRIDINE
     Indication: GAIT DISTURBANCE
     Dosage: 10 MILLIGRAM, BID
     Route: 065
     Dates: start: 201809
  5. DALFAMPRIDINE. [Suspect]
     Active Substance: DALFAMPRIDINE
     Indication: PRODUCT USED FOR UNKNOWN INDICATION
     Dosage: 10 MILLIGRAM, BID
     Route: 065
     Dates: start: 201905

REACTIONS (11)
  - Condition aggravated [Unknown]
  - Therapeutic response unexpected [Unknown]
  - Disease progression [Unknown]
  - Muscular weakness [Unknown]
  - Gait disturbance [Unknown]
  - General physical health deterioration [Unknown]
  - Asthenia [Unknown]
  - Fatigue [Unknown]
  - Drug ineffective [Unknown]
  - Fall [Unknown]
  - Dysstasia [Unknown]
